FAERS Safety Report 5455200-9 (Version None)
Quarter: 2007Q3

REPORT INFORMATION
  Report Type: 
  Country: None (occurrence: None)
  Receive Date: 20070918
  Receipt Date: 20070907
  Transmission Date: 20080115
  Serious: Yes (Other)
  Sender: FDA-Public Use
  Company Number: ZA-JNJFOC-20070901095

PATIENT
  Age: 87 Year
  Sex: Female

DRUGS (3)
  1. TAVANIC [Suspect]
     Indication: PNEUMONIA
     Route: 048
  2. SLOW-K [Concomitant]
     Route: 045
  3. TETRYZOLINE HYDROCHLORIDE [Concomitant]
     Indication: GLAUCOMA
     Route: 047

REACTIONS (3)
  - HALLUCINATION [None]
  - HEARING IMPAIRED [None]
  - VISUAL DISTURBANCE [None]
